FAERS Safety Report 7502286-3 (Version None)
Quarter: 2011Q2

REPORT INFORMATION
  Report Type: 
  Country: None (occurrence: None)
  Receive Date: 20110525
  Receipt Date: 20101229
  Transmission Date: 20111010
  Serious: Yes (Other)
  Sender: FDA-Public Use
  Company Number: US-BAYER-200942399NA

PATIENT
  Age: 26 Year
  Sex: Female
  Weight: 45.455 kg

DRUGS (20)
  1. SINGULAIR [Concomitant]
     Indication: ASTHMA
     Dates: start: 20070301
  2. PROVERA [Concomitant]
     Dosage: PROVERA X 10
  3. YASMIN [Suspect]
     Indication: HERPES SIMPLEX
     Dates: end: 20060701
  4. ADVAIR DISKUS 100/50 [Concomitant]
     Indication: ASTHMA
     Dates: start: 20070301
  5. ORTHO TRI-CYCLEN [Concomitant]
  6. YASMIN [Suspect]
  7. YAZ [Suspect]
     Indication: CONTRACEPTION
  8. NEXIUM [Concomitant]
     Indication: GASTROOESOPHAGEAL REFLUX DISEASE
     Dates: start: 20080301, end: 20090801
  9. YAZ [Suspect]
     Indication: ACNE
     Dates: start: 20080501, end: 20090801
  10. SPIRONOLACTONE [Concomitant]
     Indication: ACNE CYSTIC
     Dates: start: 20060901, end: 20100501
  11. ADVIL LIQUI-GELS [Concomitant]
  12. OVCON-35 [Concomitant]
     Indication: ACNE
     Dosage: UNK
  13. YASMIN [Suspect]
     Indication: PREMENSTRUAL SYNDROME
     Route: 048
     Dates: start: 20020101
  14. YASMIN [Suspect]
     Indication: ACNE
     Dosage: UNK
     Dates: start: 20040901, end: 20050615
  15. PREVACID [Concomitant]
     Indication: GASTROOESOPHAGEAL REFLUX DISEASE
     Dates: start: 20080301, end: 20090801
  16. YAZ [Suspect]
     Indication: PREMENSTRUAL SYNDROME
  17. MOTRIN [Concomitant]
  18. VALTREX [Concomitant]
     Indication: HERPES SIMPLEX
     Dosage: DAILY
     Route: 048
     Dates: start: 20040501
  19. OVCON-35 [Concomitant]
     Indication: CONTRACEPTION
  20. OVCON-35 [Concomitant]
     Indication: POLYCYSTIC OVARIES

REACTIONS (15)
  - CHOLECYSTITIS CHRONIC [None]
  - ABDOMINAL PAIN UPPER [None]
  - BILIARY DYSKINESIA [None]
  - GASTROOESOPHAGEAL REFLUX DISEASE [None]
  - SENSATION OF FOREIGN BODY [None]
  - NAUSEA [None]
  - PAIN [None]
  - ABDOMINAL DISCOMFORT [None]
  - MENSTRUATION IRREGULAR [None]
  - PELVIC PAIN [None]
  - ABDOMINAL PAIN [None]
  - EPIGASTRIC DISCOMFORT [None]
  - VOMITING [None]
  - ABDOMINAL TENDERNESS [None]
  - WEIGHT INCREASED [None]
